FAERS Safety Report 4621632-1 (Version None)
Quarter: 2005Q1

REPORT INFORMATION
  Report Type: 
  Country: None (occurrence: None)
  Receive Date: 20050329
  Receipt Date: 20040614
  Transmission Date: 20050727
  Serious: Yes (Death)
  Sender: FDA-Public Use
  Company Number: 9798

PATIENT
  Age: 73 Year
  Sex: Female

DRUGS (2)
  1. METHOTREXATE [Suspect]
  2. ETANERCEPT [Suspect]
     Dosage: 25 MG 2/WK
     Dates: start: 20000401, end: 20031217

REACTIONS (1)
  - LUNG ADENOCARCINOMA [None]
